FAERS Safety Report 15640230 (Version 1)
Quarter: 2018Q4

REPORT INFORMATION
  Report Type: Report from Study
  Country: US (occurrence: US)
  Receive Date: 20181120
  Receipt Date: 20181120
  Transmission Date: 20190205
  Serious: No
  Sender: FDA-Public Use
  Company Number: US-CELGENEUS-USA-20181103985

PATIENT

DRUGS (1)
  1. OTEZLA [Suspect]
     Active Substance: APREMILAST
     Indication: PSORIASIS
     Route: 065

REACTIONS (5)
  - Nausea [Unknown]
  - Therapeutic response unexpected [Unknown]
  - Extrasystoles [Unknown]
  - Anxiety [Unknown]
  - Heart rate decreased [Unknown]
